FAERS Safety Report 8816474 (Version 1)
Quarter: 2012Q4

REPORT INFORMATION
  Report Type: Spontaneous
  Country: US (occurrence: None)
  Receive Date: 20120927
  Receipt Date: 20120927
  Transmission Date: 20130627
  Serious: Yes (Hospitalization)
  Sender: FDA-Public Use
  Company Number: 2012AP003119

PATIENT
  Age: 45 Year
  Sex: Male

DRUGS (9)
  1. DIVALPROEX SODIUM [Suspect]
     Indication: EPILEPSY
  2. DIVALPROEX SODIUM [Suspect]
     Indication: EPILEPSY
  3. DIVALPROEX SODIUM [Suspect]
     Indication: EPILEPSY
  4. LAMOTRIGINE [Suspect]
     Indication: EPILEPSY
  5. RISPERIDONE [Concomitant]
  6. THIAMINE [Concomitant]
  7. COLECALCIFEROL [Concomitant]
  8. TOPIRAMATE [Concomitant]
  9. LORAZEPAM [Concomitant]

REACTIONS (9)
  - Mental status changes [None]
  - Ataxia [None]
  - Dysarthria [None]
  - Hallucination [None]
  - Aggression [None]
  - Unresponsive to stimuli [None]
  - Toxicity to various agents [None]
  - Drug interaction [None]
  - Anticonvulsant drug level increased [None]
